FAERS Safety Report 4851327-0 (Version None)
Quarter: 2005Q4

REPORT INFORMATION
  Report Type: 
  Country: None (occurrence: None)
  Receive Date: 20051212
  Receipt Date: 20051129
  Transmission Date: 20060501
  Serious: Yes (Other)
  Sender: FDA-Public Use
  Company Number: PHEH2005US12974

PATIENT
  Age: 16 Year
  Sex: Male

DRUGS (2)
  1. MINOCYCLINE [Concomitant]
     Dosage: UNK, BID
     Route: 048
  2. FOCALIN XR [Suspect]
     Indication: ATTENTION DEFICIT/HYPERACTIVITY DISORDER
     Dosage: UNK, QD
     Route: 048
     Dates: start: 20051125, end: 20051128

REACTIONS (6)
  - ANGIONEUROTIC OEDEMA [None]
  - PRURITUS [None]
  - SWELLING FACE [None]
  - URTICARIA [None]
  - URTICARIA LOCALISED [None]
  - WHEEZING [None]
